FAERS Safety Report 18496676 (Version 1)
Quarter: 2020Q4

REPORT INFORMATION
  Report Type: Spontaneous
  Country: US (occurrence: US)
  Receive Date: 20201112
  Receipt Date: 20201112
  Transmission Date: 20210114
  Serious: No
  Sender: FDA-Public Use
  Company Number: US-AMGEN-USASP2020175843

PATIENT
  Sex: Male

DRUGS (1)
  1. EPOGEN [Suspect]
     Active Substance: ERYTHROPOIETIN
     Indication: ERECTILE DYSFUNCTION
     Dosage: 40000 INTERNATIONAL UNIT, ONE TIME DOSE
     Route: 058

REACTIONS (2)
  - Off label use [Unknown]
  - Therapeutic response unexpected [Unknown]
